FAERS Safety Report 4804117-9 (Version None)
Quarter: 2005Q4

REPORT INFORMATION
  Report Type: 
  Country: None (occurrence: None)
  Receive Date: 20051018
  Receipt Date: 20051018
  Transmission Date: 20060501
  Serious: Yes (Other)
  Sender: FDA-Public Use
  Company Number: None

PATIENT
  Sex: Female
  Weight: 78.4723 kg

DRUGS (2)
  1. DOSTINEX [Suspect]
     Indication: HYPERPROLACTINAEMIA
     Dosage: 1/2 TAB (2X WEEKLY) PO
     Route: 048
     Dates: start: 19981201, end: 20051007
  2. PARLODEL [Suspect]
     Dosage: 1/2 PM HS
     Dates: start: 20021201

REACTIONS (1)
  - DRUG EFFECT DECREASED [None]
